FAERS Safety Report 10096772 (Version 1)
Quarter: 2014Q2

REPORT INFORMATION
  Report Type: Spontaneous
  Country: US (occurrence: US)
  Receive Date: 20140422
  Receipt Date: 20140422
  Transmission Date: 20141212
  Serious: Yes (Other)
  Sender: FDA-Public Use
  Company Number: CHPA2014US005516

PATIENT
  Age: 23 Year
  Sex: Male

DRUGS (2)
  1. GAS-X EXTRA STR CHEWABLE TABLETS UNKNOWN [Suspect]
     Indication: GASTRITIS
     Dosage: 3 DF, ONCE/SINGLE
     Route: 048
     Dates: start: 20140416, end: 20140416
  2. GAS-X EXTRA STR CHEWABLE TABLETS UNKNOWN [Suspect]
     Indication: OFF LABEL USE

REACTIONS (2)
  - Liver function test abnormal [Unknown]
  - Drug ineffective for unapproved indication [Unknown]
